FAERS Safety Report 4586131-4 (Version None)
Quarter: 2005Q1

REPORT INFORMATION
  Report Type: 
  Country: None (occurrence: None)
  Receive Date: 20050125
  Receipt Date: 20041015
  Transmission Date: 20050727
  Serious: No
  Sender: FDA-Public Use
  Company Number: USA041081389

PATIENT
  Age: 79 Year
  Sex: Female

DRUGS (2)
  1. FORTEO [Suspect]
     Indication: BONE DISORDER
     Dates: start: 20040929
  2. FORTEO [Suspect]
     Indication: OSTEOPOROSIS
     Dates: start: 20040929

REACTIONS (1)
  - INJECTION SITE HAEMORRHAGE [None]
